FAERS Safety Report 16799691 (Version 1)
Quarter: 2019Q3

REPORT INFORMATION
  Report Type: Spontaneous
  Country: US (occurrence: US)
  Receive Date: 20190722
  Receipt Date: 20190722
  Transmission Date: 20191005
  Serious: Yes (Hospitalization)
  Sender: FDA-Public Use
  Company Number: None

PATIENT
  Sex: Female

DRUGS (1)
  1. HYDROXYUREA  500MG CAP [Suspect]
     Active Substance: HYDROXYUREA
     Indication: POLYCYTHAEMIA VERA
     Dosage: ?          OTHER DOSE:1000MG ALTERNATING;?
     Route: 048
     Dates: start: 20170908

REACTIONS (3)
  - Post procedural haemorrhage [None]
  - Therapy cessation [None]
  - Hernia repair [None]
